FAERS Safety Report 4887362-6 (Version None)
Quarter: 2006Q1

REPORT INFORMATION
  Report Type: 
  Country: None (occurrence: None)
  Receive Date: 20060123
  Receipt Date: 20060113
  Transmission Date: 20060701
  Serious: Yes (Life-Threatening, Hospitalization, Other)
  Sender: FDA-Public Use
  Company Number: JP-JNJFOC-20050401736

PATIENT
  Sex: Female
  Weight: 49 kg

DRUGS (28)
  1. REMICADE [Suspect]
     Route: 042
  2. REMICADE [Suspect]
     Route: 042
  3. REMICADE [Suspect]
     Route: 042
  4. REMICADE [Suspect]
     Route: 042
  5. REMICADE [Suspect]
     Route: 042
  6. REMICADE [Suspect]
     Route: 042
  7. REMICADE [Suspect]
     Route: 042
  8. REMICADE [Suspect]
     Route: 042
  9. REMICADE [Suspect]
     Indication: RHEUMATOID ARTHRITIS
     Route: 042
  10. PREDNISOLONE [Suspect]
     Indication: RHEUMATOID ARTHRITIS
     Route: 048
  11. RHEUMATREX [Suspect]
     Route: 048
  12. RHEUMATREX [Suspect]
     Route: 048
  13. RHEUMATREX [Suspect]
     Route: 048
  14. RHEUMATREX [Suspect]
     Route: 048
  15. RHEUMATREX [Suspect]
     Route: 048
  16. RHEUMATREX [Suspect]
     Indication: RHEUMATOID ARTHRITIS
     Route: 048
  17. AZULFIDINE EN-TABS [Concomitant]
     Indication: RHEUMATOID ARTHRITIS
     Route: 048
  18. VOLTAREN [Concomitant]
     Indication: RHEUMATOID ARTHRITIS
     Dosage: 2 CAPS DAILY
     Route: 048
  19. FOLIAMIN [Concomitant]
     Route: 048
  20. CYTOTEC [Concomitant]
     Indication: GASTRIC ULCER
     Route: 048
  21. SALIGREN [Concomitant]
     Indication: SJOGREN'S SYNDROME
     Route: 048
  22. MUCODYNE [Concomitant]
     Route: 048
  23. RHYTHMY [Concomitant]
     Indication: INSOMNIA
     Route: 048
  24. SELTOUCH [Concomitant]
  25. PURSENNID [Concomitant]
     Indication: CONSTIPATION
     Route: 048
  26. ISCOTIN [Concomitant]
     Route: 048
  27. ADRENAL HORMONE PREPARATION [Concomitant]
     Indication: RHEUMATOID ARTHRITIS
  28. INDOMETHINE [Concomitant]
     Indication: RHEUMATOID ARTHRITIS

REACTIONS (2)
  - BRONCHITIS ACUTE [None]
  - PNEUMOCYSTIS JIROVECI PNEUMONIA [None]
